FAERS Safety Report 24009301 (Version 1)
Quarter: 2024Q2

REPORT INFORMATION
  Report Type: Spontaneous
  Country: US (occurrence: US)
  Receive Date: 20240625
  Receipt Date: 20240625
  Transmission Date: 20240716
  Serious: Yes (Other)
  Sender: FDA-Public Use
  Company Number: US-CHEPLA-2024007790

PATIENT
  Age: 66 Year
  Sex: Male

DRUGS (1)
  1. VALGANCICLOVIR [Suspect]
     Active Substance: VALGANCICLOVIR
     Indication: Antiviral prophylaxis

REACTIONS (2)
  - Polyomavirus-associated nephropathy [Unknown]
  - Creatinine renal clearance abnormal [Unknown]
